FAERS Safety Report 6813601-8 (Version None)
Quarter: 2010Q3

REPORT INFORMATION
  Report Type: 
  Country: None (occurrence: None)
  Receive Date: 20100701
  Receipt Date: 20100621
  Transmission Date: 20110219
  Serious: Yes (Other)
  Sender: FDA-Public Use
  Company Number: CA-PFIZER INC-2010077016

PATIENT
  Age: 62 Year
  Sex: Male

DRUGS (2)
  1. VARENICLINE TARTRATE [Suspect]
     Indication: SMOKING CESSATION THERAPY
  2. RISPERIDONE [Concomitant]
     Indication: SCHIZOPHRENIA
     Dosage: 25MG EVERY 2 WEEKS
     Route: 030

REACTIONS (2)
  - HYPONATRAEMIA [None]
  - POLYDIPSIA [None]
